FAERS Safety Report 9107114 (Version 3)
Quarter: 2013Q2

REPORT INFORMATION
  Report Type: Spontaneous
  Country: US (occurrence: US)
  Receive Date: 20130221
  Receipt Date: 20130531
  Transmission Date: 20140414
  Serious: No
  Sender: FDA-Public Use
  Company Number: US-009507513-1302USA009508

PATIENT
  Age: 30 Year
  Sex: Female
  Weight: 52.15 kg

DRUGS (2)
  1. NEXPLANON [Suspect]
     Dosage: 1 STANDARD PACKAGE OF PF APPLI OF 1, DOSE 1ROD
     Route: 059
     Dates: start: 20130212, end: 20130212
  2. NEXPLANON [Suspect]
     Dosage: UNK, 2ND IMPLANT
     Route: 059
     Dates: start: 20130212

REACTIONS (4)
  - Complication of device insertion [Recovered/Resolved]
  - Device expulsion [Recovered/Resolved]
  - Product quality issue [Unknown]
  - No adverse event [Unknown]
